FAERS Safety Report 7059844-2 (Version None)
Quarter: 2010Q4

REPORT INFORMATION
  Report Type: 
  Country: None (occurrence: None)
  Receive Date: 20101025
  Receipt Date: 20090720
  Transmission Date: 20110411
  Serious: Yes (Other)
  Sender: FDA-Public Use
  Company Number: PHHY2009US66910

PATIENT

DRUGS (3)
  1. EXJADE [Suspect]
     Route: 048
  2. RITALIN [Suspect]
  3. GAS X [Suspect]

REACTIONS (1)
  - DRUG INTERACTION [None]
